FAERS Safety Report 14983193 (Version 1)
Quarter: 2018Q2

REPORT INFORMATION
  Report Type: Spontaneous
  Country: US (occurrence: US)
  Receive Date: 20180607
  Receipt Date: 20180607
  Transmission Date: 20180711
  Serious: No
  Sender: FDA-Public Use
  Company Number: US-JNJFOC-20180531915

PATIENT
  Sex: Female

DRUGS (2)
  1. NIZORAL A-D [Suspect]
     Active Substance: KETOCONAZOLE
     Indication: PRODUCT USED FOR UNKNOWN INDICATION
     Dosage: FOR 2 WEEKS
     Route: 061
  2. NIZORAL A-D [Suspect]
     Active Substance: KETOCONAZOLE
     Route: 061

REACTIONS (2)
  - Hair texture abnormal [Unknown]
  - Skin disorder [Unknown]
